FAERS Safety Report 5224064-0 (Version None)
Quarter: 2007Q1

REPORT INFORMATION
  Report Type: 
  Country: None (occurrence: None)
  Receive Date: 20070130
  Receipt Date: 20070119
  Transmission Date: 20070707
  Serious: Yes (Disabling)
  Sender: FDA-Public Use
  Company Number: HQWYE032119JAN07

PATIENT
  Age: 59 Year
  Sex: Male

DRUGS (10)
  1. CORDARONE [Suspect]
     Indication: ATRIAL FIBRILLATION
     Dates: start: 20060501, end: 20061201
  2. CORDARONE [Suspect]
     Dates: start: 20061201
  3. ATORVASTATIN CALCIUM [Concomitant]
     Dosage: 40 MG, FREQUENCY UNSPECIFIED
  4. CLOPIDOGREL [Concomitant]
     Dosage: 75 MG, FREQUENCY UNSPECIFIED
  5. LERCANIDIPINE [Concomitant]
     Dosage: 10 MG, FREQUENCY UNSPECIFIED
  6. VALSARTAN [Concomitant]
     Dosage: 160 MG, FREQUENCY UNSPECIFIED
  7. FOLIC ACID [Concomitant]
     Dosage: 5 MG, FREQUENCY UNSPECIFIED
  8. XALATAN [Concomitant]
     Dosage: 2.5ML, FREQUENCY UNSPECIFIED
  9. FRUSEMIDE [Concomitant]
     Dosage: 20 MG, FREQUENCY UNSPECIFIED
  10. ACETYLSALICYLIC ACID [Concomitant]
     Dosage: 75 MG, FREQUENCY UNSPECIFIED

REACTIONS (1)
  - SCROTAL SWELLING [None]
